FAERS Safety Report 10235251 (Version 1)
Quarter: 2014Q1

REPORT INFORMATION
  Report Type: Spontaneous
  Country: US (occurrence: None)
  Receive Date: 20140306
  Receipt Date: 20140306
  Transmission Date: 20141002
  Serious: Yes (Other)
  Sender: FDA-Public Use
  Company Number: 163-21880-13092479

PATIENT
  Age: 47 Year
  Sex: Female
  Weight: 68.04 kg

DRUGS (6)
  1. REVLIMID (LENALIDOMIDE) (10 MILLIGRAM, CAPSULES) [Suspect]
     Indication: LYMPHOMA
     Dosage: 21 IN 28 D
     Route: 048
     Dates: start: 20130722, end: 20130913
  2. PROCHLOR PERAZINE (PROCHLORPERAZINE) [Concomitant]
  3. ASPIRINE (ACETYLSALICYLIC ACID) [Concomitant]
  4. OMPERAZOLE (OMEPRAZOLE) [Concomitant]
  5. ZOLPIDEM (ZOLPIDEM) [Concomitant]
  6. RITUXAN (RITUXIMAB) [Concomitant]

REACTIONS (2)
  - Lymphoma [None]
  - Dysphagia [None]
